FAERS Safety Report 8343076-1 (Version None)
Quarter: 2012Q2

REPORT INFORMATION
  Report Type: 
  Country: None (occurrence: None)
  Receive Date: 20120508
  Receipt Date: 20120424
  Transmission Date: 20120825
  Serious: Yes (Hospitalization)
  Sender: FDA-Public Use
  Company Number: JP-AMGEN-JPNSP2012016823

PATIENT
  Age: 60 Year
  Sex: Female
  Weight: 59.6 kg

DRUGS (12)
  1. ISONIAZID [Concomitant]
     Dosage: 900 MG, WEEKLY
     Route: 048
     Dates: start: 20110901, end: 20120202
  2. ALLEGRA [Concomitant]
     Dosage: 60 MG, 2X/DAY
     Route: 048
     Dates: start: 20090609
  3. SULFASALAZINE [Concomitant]
     Dosage: UNK
     Dates: start: 20100401
  4. GASTER                             /00706001/ [Concomitant]
     Dosage: 20 MG, 2X/DAY
     Route: 048
     Dates: start: 20090929
  5. ENBREL [Suspect]
     Indication: PRODUCT USED FOR UNKNOWN INDICATION
     Dosage: 50 MG, WEEKLY
     Route: 058
     Dates: start: 20110926, end: 20120202
  6. METHOTREXATE [Concomitant]
     Dosage: UNK
     Dates: start: 20101101
  7. LANSOPRAZOLE [Concomitant]
     Dosage: 30 MG, 1X/DAY
     Route: 048
     Dates: start: 20001227
  8. PREDNISOLONE [Concomitant]
     Dosage: 3 MG, 1X/DAY
     Route: 048
     Dates: start: 20111205, end: 20120302
  9. VIBRAMYCIN                         /00055702/ [Concomitant]
     Dosage: 100 MG, 1X/DAY
     Route: 048
     Dates: start: 20110620
  10. BIOTIN [Concomitant]
     Indication: PUSTULAR PSORIASIS
     Dosage: 3 MG, 3X/DAY
     Route: 048
     Dates: start: 20090609
  11. MIYA BM [Concomitant]
     Indication: PUSTULAR PSORIASIS
     Dosage: 0.5 G, 3X/DAY
     Route: 048
     Dates: start: 20090609
  12. ALENDRONATE SODIUM [Concomitant]
     Dosage: 35 MG, WEEKLY
     Route: 048
     Dates: start: 20111107

REACTIONS (1)
  - PYODERMA GANGRENOSUM [None]
